FAERS Safety Report 18285501 (Version 1)
Quarter: 2020Q3

REPORT INFORMATION
  Report Type: Spontaneous
  Country: JP (occurrence: JP)
  Receive Date: 20200918
  Receipt Date: 20200918
  Transmission Date: 20201103
  Serious: Yes (Hospitalization)
  Sender: FDA-Public Use
  Company Number: JP-PURDUE-USA-2020-0166876

PATIENT
  Sex: Female

DRUGS (3)
  1. NORSPAN [Suspect]
     Active Substance: BUPRENORPHINE
     Indication: BACK PAIN
     Dosage: UNK
     Route: 062
  2. IMATINIB. [Concomitant]
     Active Substance: IMATINIB MESYLATE
     Dosage: 4 DF, DAILY
     Route: 048
  3. INTERFERON [Concomitant]
     Active Substance: INTERFERON
     Route: 042

REACTIONS (1)
  - Leukaemia [Unknown]
